FAERS Safety Report 4784496-1 (Version None)
Quarter: 2005Q3

REPORT INFORMATION
  Report Type: 
  Country: None (occurrence: None)
  Receive Date: 20050930
  Receipt Date: 20050927
  Transmission Date: 20060218
  Serious: Yes (Other)
  Sender: FDA-Public Use
  Company Number: US-GLAXOSMITHKLINE-A0576080A

PATIENT
  Age: 36 Year
  Sex: Female

DRUGS (8)
  1. LAMICTAL [Suspect]
     Indication: BIPOLAR DISORDER
     Dosage: 100MG PER DAY
     Route: 048
     Dates: start: 20050101
  2. ORAL CONTRACEPTIVES [Suspect]
     Indication: PROPHYLAXIS
     Route: 048
  3. VICODIN [Concomitant]
  4. AMBIEN [Concomitant]
  5. XANAX [Concomitant]
  6. EFFEXOR [Concomitant]
  7. CARDIZEM [Concomitant]
  8. HYDROCHLOROTHIAZIDE [Concomitant]

REACTIONS (4)
  - ABORTION [None]
  - DRUG EXPOSURE DURING PREGNANCY [None]
  - METRORRHAGIA [None]
  - PREGNANCY [None]
